FAERS Safety Report 8902628 (Version 1)
Quarter: 2012Q4

REPORT INFORMATION
  Report Type: 
  Country: GR (occurrence: GR)
  Receive Date: 20121112
  Receipt Date: 20121112
  Transmission Date: 20130627
  Serious: Yes (Other)
  Sender: FDA-Public Use
  Company Number: PHHY2012GR103006

PATIENT
  Age: 65 Year
  Sex: Female

DRUGS (3)
  1. ALENDRONATE [Suspect]
     Indication: OSTEOPOROSIS POSTMENOPAUSAL
  2. CALCIUM [Concomitant]
  3. VITAMIN D [Concomitant]

REACTIONS (2)
  - Fall [Recovered/Resolved]
  - Femur fracture [Recovered/Resolved]
